FAERS Safety Report 21971026 (Version 1)
Quarter: 2023Q1

REPORT INFORMATION
  Report Type: Spontaneous
  Country: CA (occurrence: CA)
  Receive Date: 20230209
  Receipt Date: 20230209
  Transmission Date: 20230418
  Serious: Yes (Other)
  Sender: FDA-Public Use
  Company Number: CA-ORGANON-O2302CAN000590

PATIENT
  Age: 79 Year
  Sex: Female

DRUGS (1)
  1. ZENHALE [Suspect]
     Active Substance: FORMOTEROL FUMARATE\MOMETASONE FUROATE
     Indication: Product used for unknown indication
     Dosage: UNK, DOSAGE FORM: AEROSOL, METERED DOSE
     Route: 065

REACTIONS (3)
  - Conjunctivitis [Unknown]
  - Eye pruritus [Unknown]
  - Eyelid rash [Unknown]
